FAERS Safety Report 9005460 (Version 1)
Quarter: 2013Q1

REPORT INFORMATION
  Report Type: Spontaneous
  Country: US (occurrence: US)
  Receive Date: 20130109
  Receipt Date: 20130109
  Transmission Date: 20140127
  Serious: No
  Sender: FDA-Public Use
  Company Number: US-009507513-1301USA001486

PATIENT
  Age: 9 Year
  Sex: Male

DRUGS (3)
  1. SINGULAIR [Suspect]
     Indication: PRODUCT USED FOR UNKNOWN INDICATION
  2. CONCERTA [Suspect]
     Dosage: 37 MG PER DAY
  3. ADVAIR [Suspect]
     Dosage: DIKUS 100/50; RESPIRATORY (INHALATION)

REACTIONS (1)
  - Haemorrhage [Unknown]
